FAERS Safety Report 8250495-0 (Version None)
Quarter: 2012Q2

REPORT INFORMATION
  Report Type: 
  Country: None (occurrence: None)
  Receive Date: 20120402
  Receipt Date: 20120402
  Transmission Date: 20120825
  Serious: Yes (Other)
  Sender: FDA-Public Use
  Company Number: None

PATIENT
  Sex: Female
  Weight: 104.32 kg

DRUGS (1)
  1. LOESTRIN 24 FE [Suspect]
     Indication: CONTRACEPTION
     Dosage: 28 DAYS
     Route: 048

REACTIONS (5)
  - HEADACHE [None]
  - NAUSEA [None]
  - MUSCLE SPASMS [None]
  - METRORRHAGIA [None]
  - MOOD SWINGS [None]
